FAERS Safety Report 11841610 (Version 1)
Quarter: 2015Q4

REPORT INFORMATION
  Report Type: Spontaneous
  Country: DE (occurrence: DE)
  Receive Date: 20151216
  Receipt Date: 20151216
  Transmission Date: 20160305
  Serious: Yes (Other)
  Sender: FDA-Public Use
  Company Number: DE-BRISTOL-MYERS SQUIBB COMPANY-BMS-2015-082162

PATIENT
  Sex: Female
  Weight: 90 kg

DRUGS (1)
  1. ETOPOPHOS [Suspect]
     Active Substance: ETOPOSIDE PHOSPHATE
     Indication: SMALL CELL CARCINOMA
     Dosage: 290 MG, UNK
     Route: 042
     Dates: start: 20151119

REACTIONS (3)
  - Extravasation [Recovered/Resolved]
  - Swelling [Unknown]
  - Pain [Unknown]
